FAERS Safety Report 4959776-7 (Version None)
Quarter: 2006Q1

REPORT INFORMATION
  Report Type: 
  Country: None (occurrence: None)
  Receive Date: 20060331
  Receipt Date: 20060324
  Transmission Date: 20060701
  Serious: Yes (Other)
  Sender: FDA-Public Use
  Company Number: GB-BRISTOL-MYERS SQUIBB COMPANY-13326749

PATIENT

DRUGS (2)
  1. PACLITAXEL [Suspect]
  2. GEMCITABINE [Suspect]

REACTIONS (1)
  - KERATOPATHY [None]
